FAERS Safety Report 6247211-0 (Version None)
Quarter: 2009Q2

REPORT INFORMATION
  Report Type: 
  Country: None (occurrence: None)
  Receive Date: 20090626
  Receipt Date: 20090527
  Transmission Date: 20091009
  Serious: Yes (Hospitalization)
  Sender: FDA-Public Use
  Company Number: JP-ASTRAZENECA-2009AP02018

PATIENT
  Age: 18940 Day
  Sex: Female

DRUGS (10)
  1. MEROPEN [Suspect]
     Route: 042
     Dates: start: 20080716, end: 20080722
  2. AMBISOME [Suspect]
     Indication: FUNGAL INFECTION
     Route: 041
     Dates: start: 20080720, end: 20080722
  3. AMBISOME [Suspect]
     Indication: FEBRILE NEUTROPENIA
     Route: 041
     Dates: start: 20080720, end: 20080722
  4. SANDIMMUNE [Suspect]
     Route: 041
     Dates: end: 20080720
  5. TOBRACIN [Suspect]
     Route: 065
     Dates: start: 20080720
  6. ITRIZOLE [Concomitant]
     Route: 048
     Dates: end: 20080720
  7. VICCLOX [Concomitant]
     Route: 041
  8. URSO 250 [Concomitant]
     Route: 048
  9. TAKEPRON [Concomitant]
     Route: 048
  10. GRAN [Concomitant]
     Dates: start: 20080721

REACTIONS (1)
  - RENAL IMPAIRMENT [None]
